FAERS Safety Report 7272813-2 (Version None)
Quarter: 2010Q4

REPORT INFORMATION
  Report Type: 
  Country: None (occurrence: None)
  Receive Date: 20101201
  Receipt Date: 20100323
  Transmission Date: 20110411
  Serious: Yes (Hospitalization)
  Sender: FDA-Public Use
  Company Number: 306092

PATIENT
  Age: 44 Year
  Sex: Female
  Weight: 81.6 kg

DRUGS (1)
  1. NOVOLOG MIX 70/30 [Suspect]
     Indication: TYPE 1 DIABETES MELLITUS
     Dosage: 12 U, BUD, SUBCUTANEOUS
     Route: 058
     Dates: start: 20020101

REACTIONS (1)
  - BLOOD GLUCOSE INCREASED [None]
